FAERS Safety Report 4636227-3 (Version None)
Quarter: 2005Q2

REPORT INFORMATION
  Report Type: 
  Country: None (occurrence: None)
  Receive Date: 20050413
  Receipt Date: 20050413
  Transmission Date: 20051028
  Serious: Yes (Other)
  Sender: FDA-Public Use
  Company Number: None

PATIENT
  Age: 69 Year
  Sex: Male
  Weight: 107.0489 kg

DRUGS (1)
  1. REMERON [Suspect]
     Indication: DEPRESSION
     Dosage: 45 MG HS

REACTIONS (3)
  - HYPOAESTHESIA [None]
  - PARAESTHESIA [None]
  - SYNCOPE [None]
